FAERS Safety Report 5702741-2 (Version None)
Quarter: 2008Q2

REPORT INFORMATION
  Report Type: 
  Country: None (occurrence: None)
  Receive Date: 20080411
  Receipt Date: 20080331
  Transmission Date: 20081010
  Serious: Yes (Hospitalization)
  Sender: FDA-Public Use
  Company Number: B0511239A

PATIENT
  Age: 66 Year
  Sex: Female
  Weight: 57 kg

DRUGS (2)
  1. TYVERB [Suspect]
     Dosage: 1250MG PER DAY
     Route: 048
  2. XELODA [Suspect]
     Dosage: 2000MGM2 PER DAY
     Route: 048
     Dates: end: 20071204

REACTIONS (3)
  - APHTHOUS STOMATITIS [None]
  - PULMONARY EMBOLISM [None]
  - STOMATITIS [None]
